FAERS Safety Report 5486616-2 (Version None)
Quarter: 2007Q3

REPORT INFORMATION
  Report Type: 
  Country: None (occurrence: None)
  Receive Date: 20070925
  Receipt Date: 20070607
  Transmission Date: 20080115
  Serious: No
  Sender: FDA-Public Use
  Company Number: 2007US000922

PATIENT
  Age: 81 Year
  Sex: Female

DRUGS (6)
  1. VESICARE [Suspect]
     Indication: INCONTINENCE
     Dates: start: 20070406, end: 20070504
  2. ZOLOFT [Concomitant]
  3. TAPAZOLE [Concomitant]
  4. SPIRONOLACTONE [Concomitant]
  5. LISINOPRIL [Concomitant]
  6. NORVASC [Concomitant]

REACTIONS (2)
  - DRY MOUTH [None]
  - PAIN IN EXTREMITY [None]
